FAERS Safety Report 6759965-5 (Version None)
Quarter: 2010Q2

REPORT INFORMATION
  Report Type: 
  Country: None (occurrence: None)
  Receive Date: 20100604
  Receipt Date: 20100524
  Transmission Date: 20101027
  Serious: Yes (Hospitalization)
  Sender: FDA-Public Use
  Company Number: 2009AC000209

PATIENT
  Age: 49 Year
  Sex: Female

DRUGS (30)
  1. DIGOXIN [Suspect]
     Dosage: 0.125 MG; PO
     Route: 048
     Dates: start: 20071112, end: 20080429
  2. DIGOXIN [Suspect]
     Dosage: 0.125 MG; PO
     Route: 048
     Dates: start: 20030901
  3. OXYGEN [Concomitant]
  4. LASIX [Concomitant]
  5. SPIRONOLACTONE [Concomitant]
  6. LISIPNOPRIL [Concomitant]
  7. COUMADIN [Concomitant]
  8. ASPIRIN [Concomitant]
  9. AMBIEN [Concomitant]
  10. TRAMADOL [Concomitant]
  11. LORATADINE [Concomitant]
  12. ALBUTEROL [Concomitant]
  13. ATROVENT [Concomitant]
  14. ESOMEPRAZOLE [Concomitant]
  15. CLONAZEPAM [Concomitant]
  16. CELEXA [Concomitant]
  17. FLONASE [Concomitant]
  18. PROTONIX [Concomitant]
  19. DILTIAZEM [Concomitant]
  20. NICOTINE [Concomitant]
  21. NICOTINE [Concomitant]
  22. SENNA [Concomitant]
  23. SPIRIVA [Concomitant]
  24. ADVAIR DISKUS 100/50 [Concomitant]
  25. FLEXERIL [Concomitant]
  26. PANTORPAZOLE [Concomitant]
  27. MEDROXYPROGESTERONE [Concomitant]
  28. RANITIDINE [Concomitant]
  29. NEXIUM [Concomitant]
  30. ENOXAPARIN SODIUM [Concomitant]

REACTIONS (27)
  - BLOOD CHLORIDE DECREASED [None]
  - BLOOD CREATININE INCREASED [None]
  - BLOOD GLUCOSE INCREASED [None]
  - BLOOD PARATHYROID HORMONE INCREASED [None]
  - BLOOD POTASSIUM INCREASED [None]
  - BLOOD SODIUM DECREASED [None]
  - BLOOD UREA INCREASED [None]
  - DEPRESSION [None]
  - ELECTROCARDIOGRAM ST SEGMENT ABNORMAL [None]
  - HAEMOGLOBIN DECREASED [None]
  - INJURY [None]
  - MALAISE [None]
  - MEAN CELL HAEMOGLOBIN CONCENTRATION DECREASED [None]
  - MEAN CELL HAEMOGLOBIN DECREASED [None]
  - MEAN CELL VOLUME DECREASED [None]
  - MIDDLE INSOMNIA [None]
  - PANIC ATTACK [None]
  - PARTNER STRESS [None]
  - PROTHROMBIN TIME PROLONGED [None]
  - RED CELL DISTRIBUTION WIDTH INCREASED [None]
  - RUSSELL'S VIPER VENOM TIME ABNORMAL [None]
  - SINUS TACHYCARDIA [None]
  - SKIN HYPOPIGMENTATION [None]
  - SOMNAMBULISM [None]
  - TOOTH FRACTURE [None]
  - TOOTHACHE [None]
  - VENTRICULAR HYPERTROPHY [None]
